FAERS Safety Report 7357375-3 (Version None)
Quarter: 2011Q1

REPORT INFORMATION
  Report Type: 
  Country: None (occurrence: None)
  Receive Date: 20110317
  Receipt Date: 20110309
  Transmission Date: 20110831
  Serious: Yes (Life-Threatening)
  Sender: FDA-Public Use
  Company Number: US-TYCO HEALTHCARE/MALLINCKRODT-T201100584

PATIENT
  Age: 43 Year
  Sex: Male

DRUGS (1)
  1. OPTIRAY 350 [Suspect]
     Indication: COMPUTERISED TOMOGRAM
     Dosage: 125 ML, SINGLE
     Route: 042
     Dates: start: 20110303, end: 20110303

REACTIONS (6)
  - THROAT IRRITATION [None]
  - LACRIMATION INCREASED [None]
  - SNEEZING [None]
  - NAUSEA [None]
  - OCULAR HYPERAEMIA [None]
  - DYSPNOEA [None]
